FAERS Safety Report 6567966-5 (Version None)
Quarter: 2010Q1

REPORT INFORMATION
  Report Type: 
  Country: None (occurrence: None)
  Receive Date: 20100203
  Receipt Date: 20100121
  Transmission Date: 20100710
  Serious: Yes (Hospitalization, Disabling)
  Sender: FDA-Public Use
  Company Number: BE-CELGENEUS-013-20785-09050152

PATIENT
  Sex: Female
  Weight: 50 kg

DRUGS (7)
  1. THALIDOMIDE PHARMION [Suspect]
     Indication: SPLENOMEGALY
     Route: 048
     Dates: start: 20070601, end: 20080801
  2. ALLOPURINOL [Concomitant]
     Route: 065
     Dates: start: 19950101
  3. MEDROL [Concomitant]
     Indication: SPLENOMEGALY
     Route: 065
     Dates: start: 20070601, end: 20080801
  4. ALDACTAZINE [Concomitant]
     Indication: DRUG USE FOR UNKNOWN INDICATION
     Route: 065
  5. CARDIOASPIRINE [Concomitant]
     Indication: DRUG USE FOR UNKNOWN INDICATION
     Route: 065
  6. HYDREA [Concomitant]
     Route: 065
  7. BLOOD LETTING [Concomitant]
     Route: 065

REACTIONS (3)
  - DISEASE PROGRESSION [None]
  - POLYNEUROPATHY [None]
  - ULCER [None]
